FAERS Safety Report 7912110-2 (Version None)
Quarter: 2011Q4

REPORT INFORMATION
  Report Type: 
  Country: None (occurrence: None)
  Receive Date: 20111114
  Receipt Date: 20111031
  Transmission Date: 20120403
  Serious: No
  Sender: FDA-Public Use
  Company Number: US-B.I. PHARMACEUTICALS,INC./RIDGEFIELD-2011-BP-25310BP

PATIENT
  Sex: Male

DRUGS (5)
  1. LASIX [Concomitant]
     Indication: HYPERTENSION
     Dates: start: 20090101
  2. PRADAXA [Suspect]
     Indication: ATRIAL FIBRILLATION
     Dosage: 300 MG
     Route: 048
     Dates: start: 20110429
  3. DIGOXIN [Concomitant]
     Indication: ATRIAL FIBRILLATION
     Dosage: 0.25 MG
     Route: 048
     Dates: start: 20110501
  4. FLOMAX [Concomitant]
     Indication: BENIGN PROSTATIC HYPERPLASIA
     Dosage: 40 MG
     Route: 048
     Dates: start: 20070101
  5. AZOR [Concomitant]
     Indication: HYPERTENSION
     Dates: start: 20070101

REACTIONS (3)
  - DYSPEPSIA [None]
  - FLATULENCE [None]
  - DIARRHOEA [None]
